FAERS Safety Report 6510522-5 (Version None)
Quarter: 2009Q4

REPORT INFORMATION
  Report Type: 
  Country: None (occurrence: None)
  Receive Date: 20091222
  Receipt Date: 20091215
  Transmission Date: 20100525
  Serious: Yes (Hospitalization)
  Sender: FDA-Public Use
  Company Number: ZA-JNJFOC-20091100305

PATIENT
  Sex: Female
  Weight: 60 kg

DRUGS (2)
  1. REVELLEX [Suspect]
     Route: 042
     Dates: start: 20091023, end: 20091106
  2. REVELLEX [Suspect]
     Indication: CROHN'S DISEASE
     Route: 042
     Dates: start: 20091023, end: 20091106

REACTIONS (5)
  - ABDOMINAL PAIN [None]
  - DECREASED APPETITE [None]
  - FATIGUE [None]
  - NAUSEA [None]
  - VOMITING [None]
